FAERS Safety Report 5526171-1 (Version None)
Quarter: 2007Q4

REPORT INFORMATION
  Report Type: 
  Country: None (occurrence: None)
  Receive Date: 20071120
  Receipt Date: 20071113
  Transmission Date: 20080405
  Serious: Yes (Disabling)
  Sender: FDA-Public Use
  Company Number: 2007AL004852

PATIENT
  Age: 30 Year
  Sex: Female

DRUGS (4)
  1. MIRTAZAPINE [Suspect]
     Indication: DEPRESSION
     Dosage: 30 MG; QD; PO
     Route: 048
     Dates: start: 20070813, end: 20070901
  2. METHADONE [Concomitant]
  3. DIAZEPAM [Concomitant]
  4. CO-CODAMOL [Concomitant]

REACTIONS (4)
  - BLISTER [None]
  - INFECTION [None]
  - OEDEMA PERIPHERAL [None]
  - PAIN [None]
